FAERS Safety Report 5036429-0 (Version None)
Quarter: 2006Q2

REPORT INFORMATION
  Report Type: 
  Country: None (occurrence: None)
  Receive Date: 20060628
  Receipt Date: 20060619
  Transmission Date: 20061013
  Serious: Yes (Hospitalization)
  Sender: FDA-Public Use
  Company Number: FR-JNJFOC-20060604267

PATIENT
  Age: 74 Year
  Sex: Male
  Weight: 59 kg

DRUGS (3)
  1. REMICADE [Suspect]
     Route: 042
  2. REMICADE [Suspect]
     Indication: ACRODERMATITIS
     Route: 042
  3. RAPTIVA [Concomitant]

REACTIONS (2)
  - ECZEMA [None]
  - TOXIC SKIN ERUPTION [None]
